APPROVED DRUG PRODUCT: CHLORTHALIDONE
Active Ingredient: CHLORTHALIDONE
Strength: 50MG
Dosage Form/Route: TABLET;ORAL
Application: A087947 | Product #001
Applicant: IVAX PHARMACEUTICALS INC
Approved: Feb 27, 1984 | RLD: No | RS: No | Type: DISCN